FAERS Safety Report 6565580-9 (Version None)
Quarter: 2010Q1

REPORT INFORMATION
  Report Type: 
  Country: None (occurrence: None)
  Receive Date: 20100201
  Receipt Date: 20100128
  Transmission Date: 20100710
  Serious: Yes (Death)
  Sender: FDA-Public Use
  Company Number: NZ-JNJFOC-20100112325

PATIENT
  Sex: Male

DRUGS (2)
  1. DURAGESIC-100 [Suspect]
     Indication: OROPHARYNGEAL PAIN
     Route: 062
  2. MORPHINE [Suspect]
     Indication: OROPHARYNGEAL PAIN
     Dosage: 3 TO 4 TIMES A DAY
     Route: 065

REACTIONS (1)
  - PNEUMONIA ASPIRATION [None]
